FAERS Safety Report 25957518 (Version 2)
Quarter: 2025Q4

REPORT INFORMATION
  Report Type: Spontaneous
  Country: CH (occurrence: None)
  Receive Date: 20251024
  Receipt Date: 20251128
  Transmission Date: 20260119
  Serious: Yes (Other)
  Sender: UCB
  Company Number: CH-UCBSA-2025066153

PATIENT
  Weight: 26.7 kg

DRUGS (5)
  1. VIMPAT [Suspect]
     Active Substance: LACOSAMIDE
     Indication: Seizure
     Dosage: 125 MILLIGRAM-150 MILLIGRAM (TOTAL DOSE 275 MG) TWICE A DAY
  2. VALPROATE [Suspect]
     Active Substance: VALPROIC ACID
     Indication: Seizure
     Dosage: UNK
  3. CANNABIDIOL [Suspect]
     Active Substance: CANNABIDIOL
     Indication: Seizure
     Dosage: 1.3-0.2 MILLILITER, TWICE PER DAY
  4. RIVOTRIL [Suspect]
     Active Substance: CLONAZEPAM
     Indication: Seizure
     Dosage: UNK
  5. CLOBAZAM [Suspect]
     Active Substance: CLOBAZAM
     Indication: Seizure
     Dosage: UNK

REACTIONS (4)
  - Vagal nerve stimulator implantation [Unknown]
  - Multiple-drug resistance [Unknown]
  - Off label use [Unknown]
  - Product use issue [Unknown]
